FAERS Safety Report 22200879 (Version 1)
Quarter: 2023Q2

REPORT INFORMATION
  Report Type: Spontaneous
  Country: US (occurrence: US)
  Receive Date: 20230412
  Receipt Date: 20230412
  Transmission Date: 20230722
  Serious: Yes (Hospitalization, Other)
  Sender: FDA-Public Use
  Company Number: US-SA-SAC20230411000089

PATIENT
  Age: 36 Year
  Sex: Female
  Weight: 85.7 kg

DRUGS (14)
  1. FABRAZYME [Suspect]
     Active Substance: AGALSIDASE BETA
     Dosage: 85 MG, QOW
     Route: 042
     Dates: start: 20160512
  2. DIPHENHYDRAMINE HYDROCHLORIDE [Concomitant]
     Active Substance: DIPHENHYDRAMINE HYDROCHLORIDE
  3. DIPHENHYDRAMINE HYDROCHLORIDE [Concomitant]
     Active Substance: DIPHENHYDRAMINE HYDROCHLORIDE
  4. HEPARIN [Concomitant]
     Active Substance: HEPARIN SODIUM
  5. ADVIL [Concomitant]
     Active Substance: IBUPROFEN
  6. SODIUM CHLORIDE [Concomitant]
     Active Substance: SODIUM CHLORIDE
  7. CARVEDILOL [Concomitant]
     Active Substance: CARVEDILOL
  8. EPINEPHRINE [Concomitant]
     Active Substance: EPINEPHRINE
  9. PEPCID [Concomitant]
     Active Substance: FAMOTIDINE
  10. ACETAMINOPHEN [Concomitant]
     Active Substance: ACETAMINOPHEN
  11. STERILE WATER [Concomitant]
     Active Substance: WATER
  12. NALTREXONE HYDROCHLORIDE [Concomitant]
     Active Substance: NALTREXONE HYDROCHLORIDE
  13. HYDROCHLOROTHIAZIDE [Concomitant]
     Active Substance: HYDROCHLOROTHIAZIDE
  14. SODIUM CHLORIDE [Concomitant]
     Active Substance: SODIUM CHLORIDE

REACTIONS (1)
  - Syncope [Unknown]

NARRATIVE: CASE EVENT DATE: 20230403
